FAERS Safety Report 20734707 (Version 1)
Quarter: 2022Q2

REPORT INFORMATION
  Report Type: Report from Study
  Country: EG (occurrence: EG)
  Receive Date: 20220421
  Receipt Date: 20220421
  Transmission Date: 20220720
  Serious: Yes (Other)
  Sender: FDA-Public Use
  Company Number: EG-NOVARTISPH-NVSC2022EG091283

PATIENT
  Age: 56 Year
  Sex: Male

DRUGS (5)
  1. ENTRESTO [Suspect]
     Active Substance: SACUBITRIL\VALSARTAN
     Indication: Cardiac failure
     Dosage: 200 MG, BID
     Route: 048
     Dates: start: 20190614
  2. ENTRESTO [Suspect]
     Active Substance: SACUBITRIL\VALSARTAN
     Indication: Ejection fraction
     Dosage: 100 MG, BID
     Route: 048
     Dates: start: 202101
  3. DAPAGLIFLOZIN [Concomitant]
     Active Substance: DAPAGLIFLOZIN
     Indication: Cardiomyopathy
     Dosage: 1 DOSAGE FORM, QD (STARTED YEAR AGO)
     Route: 065
  4. COUMADIN [Concomitant]
     Active Substance: WARFARIN SODIUM
     Indication: Blood viscosity increased
     Dosage: 1.5 DOSAGE FORM, QD (STARTED 10 YEARS AGO)
     Route: 065
  5. TORSEMIDE [Concomitant]
     Active Substance: TORSEMIDE
     Indication: Diuretic therapy
     Dosage: 1 DOSAGE FORM, QD (STARTED YEAR AGO)
     Route: 065

REACTIONS (8)
  - COVID-19 [Recovered/Resolved]
  - Chest pain [Recovered/Resolved]
  - Back pain [Recovered/Resolved]
  - Pneumonitis [Recovered/Resolved]
  - Ejection fraction decreased [Not Recovered/Not Resolved]
  - Pericardial effusion [Recovered/Resolved]
  - Hypotension [Not Recovered/Not Resolved]
  - Hyperviscosity syndrome [Not Recovered/Not Resolved]

NARRATIVE: CASE EVENT DATE: 20210101
